FAERS Safety Report 9543695 (Version 2)
Quarter: 2013Q4

REPORT INFORMATION
  Report Type: Spontaneous
  Country: US (occurrence: US)
  Receive Date: 20130923
  Receipt Date: 20131010
  Transmission Date: 20140711
  Serious: Yes (Hospitalization)
  Sender: FDA-Public Use
  Company Number: US-GILEAD-2013-0083742

PATIENT
  Sex: Female

DRUGS (2)
  1. LETAIRIS [Suspect]
     Indication: PULMONARY ARTERIAL HYPERTENSION
     Dosage: 10 MG, QD
     Route: 048
     Dates: start: 20120802
  2. TYVASO [Concomitant]

REACTIONS (4)
  - Muscular weakness [Recovering/Resolving]
  - Tachycardia [Recovering/Resolving]
  - Diarrhoea [Unknown]
  - Constipation [Unknown]
